FAERS Safety Report 6578624-5 (Version None)
Quarter: 2010Q1

REPORT INFORMATION
  Report Type: 
  Country: None (occurrence: None)
  Receive Date: 20100211
  Receipt Date: 20100201
  Transmission Date: 20100710
  Serious: Yes (Hospitalization)
  Sender: FDA-Public Use
  Company Number: JP-ABBOTT-08P-087-0464034-00

PATIENT
  Age: 87 Year
  Sex: Male

DRUGS (13)
  1. LEUPLIN SR FOR INJECTION 11.25 MG [Suspect]
     Indication: PROSTATE CANCER STAGE IV
     Route: 058
     Dates: start: 20071219
  2. LEUPLIN SR FOR INJECTION 11.25 MG [Suspect]
     Dates: start: 20071123, end: 20071123
  3. CASODEX [Concomitant]
     Indication: PROSTATE CANCER STAGE IV
     Route: 048
     Dates: end: 20091118
  4. PERDIPINE [Concomitant]
     Indication: HYPERTENSION
     Route: 048
     Dates: end: 20080302
  5. ADALAT CC [Concomitant]
     Indication: HYPERTENSION
     Route: 048
  6. MICARDIS [Concomitant]
     Indication: HYPERTENSION
     Route: 048
  7. INDERAL [Concomitant]
     Indication: HYPERTENSION
     Route: 048
  8. FLUTAMIDE [Concomitant]
     Indication: PROSTATE CANCER STAGE IV
     Route: 048
     Dates: start: 20081119, end: 20090113
  9. ESTRAMUSTINE PHOSPHATE [Concomitant]
     Indication: PROSTATE CANCER STAGE IV
     Route: 048
     Dates: start: 20090114, end: 20090712
  10. ESTRAMUSTINE PHOSPHATE [Concomitant]
     Route: 048
     Dates: start: 20090713, end: 20090914
  11. PROSEXOL [Concomitant]
     Indication: PROSTATE CANCER STAGE IV
     Route: 048
     Dates: start: 20090915, end: 20091001
  12. DECADRON [Concomitant]
     Indication: PROSTATE CANCER STAGE IV
     Route: 048
     Dates: start: 20091002
  13. CARDENALIN [Concomitant]
     Indication: HYPERTENSION
     Route: 048
     Dates: start: 20090605

REACTIONS (1)
  - CARDIAC FAILURE [None]
